FAERS Safety Report 7680324-5 (Version None)
Quarter: 2011Q3

REPORT INFORMATION
  Report Type: 
  Country: None (occurrence: None)
  Receive Date: 20110812
  Receipt Date: 20110803
  Transmission Date: 20111222
  Serious: Yes (Hospitalization, Other)
  Sender: FDA-Public Use
  Company Number: US-GLAXOSMITHKLINE-A0939547A

PATIENT
  Age: 33 Year
  Sex: Female

DRUGS (2)
  1. NO CONCURRENT MEDICATION [Concomitant]
  2. ARIXTRA [Suspect]
     Indication: THROMBOSIS
     Dosage: 7.5MCG PER DAY
     Route: 058
     Dates: start: 20110524, end: 20110708

REACTIONS (1)
  - RENAL FAILURE [None]
